FAERS Safety Report 13426754 (Version 2)
Quarter: 2017Q2

REPORT INFORMATION
  Report Type: Spontaneous
  Country: US (occurrence: US)
  Receive Date: 20170411
  Receipt Date: 20170616
  Transmission Date: 20170830
  Serious: No
  Sender: FDA-Public Use
  Company Number: US-PFIZER INC-2017150188

PATIENT

DRUGS (1)
  1. FLECTOR [Suspect]
     Active Substance: DICLOFENAC EPOLAMINE
     Indication: COSTOCHONDRITIS
     Dosage: UNK (ONE ON EITHER SIDE OF HER RIBS)
     Route: 062
     Dates: start: 20170331

REACTIONS (2)
  - Erythema [Unknown]
  - Drug ineffective [Unknown]
